FAERS Safety Report 10160116 (Version 2)
Quarter: 2014Q2

REPORT INFORMATION
  Report Type: Report from Study
  Country: IT (occurrence: IT)
  Receive Date: 20140508
  Receipt Date: 20140508
  Transmission Date: 20141212
  Serious: Yes (Hospitalization)
  Sender: FDA-Public Use
  Company Number: PHHO2014IT004811

PATIENT
  Sex: 0

DRUGS (7)
  1. LDK378 [Suspect]
     Indication: COLORECTAL CANCER METASTATIC
     Dosage: 750 MG, UNK
     Route: 048
     Dates: start: 20140307
  2. NOVONORM [Concomitant]
     Indication: TYPE 2 DIABETES MELLITUS
     Dosage: 2 MG, UNK
  3. TACHIDOL [Concomitant]
     Indication: ARTHRALGIA
     Dosage: 930MG (900MG+30MG)
     Dates: start: 20140307
  4. LANSOPRAZOLE [Concomitant]
     Indication: PROPHYLAXIS
     Dosage: 30 MG, UNK
     Dates: start: 20140206
  5. TRANEX [Concomitant]
     Indication: HAEMOPTYSIS
     Dosage: 1 VIAL
  6. PLASIL [Concomitant]
     Indication: NAUSEA
     Dosage: 10 MG, UNK
     Dates: start: 20140307, end: 20140320
  7. UGUROL [Concomitant]
     Indication: HAEMOPTYSIS
     Dosage: 1 VIAL
     Dates: start: 20140206, end: 20140321

REACTIONS (1)
  - General physical health deterioration [Recovered/Resolved]
